FAERS Safety Report 7298259-9 (Version None)
Quarter: 2011Q1

REPORT INFORMATION
  Report Type: 
  Country: None (occurrence: None)
  Receive Date: 20110217
  Receipt Date: 20100322
  Transmission Date: 20110831
  Serious: No
  Sender: FDA-Public Use
  Company Number: US-PFIZER INC-2010037219

PATIENT
  Sex: Female

DRUGS (1)
  1. XALATAN [Suspect]
     Dosage: UNK

REACTIONS (4)
  - OCULAR HYPERAEMIA [None]
  - EYE IRRITATION [None]
  - PERIORBITAL DISORDER [None]
  - INCORRECT DOSE ADMINISTERED [None]
